FAERS Safety Report 7251653-4 (Version None)
Quarter: 2011Q1

REPORT INFORMATION
  Report Type: 
  Country: None (occurrence: None)
  Receive Date: 20110128
  Receipt Date: 20110126
  Transmission Date: 20110831
  Serious: Yes (Death)
  Sender: FDA-Public Use
  Company Number: US-CEPHALON-2011000109

PATIENT
  Sex: Female
  Weight: 34 kg

DRUGS (3)
  1. FENTORA [Suspect]
     Indication: GASTROINTESTINAL DISORDER
     Route: 002
     Dates: start: 20080101
  2. FENTORA [Suspect]
     Indication: INTERVERTEBRAL DISC DISORDER
  3. FENTORA [Suspect]
     Indication: MYELOPATHY

REACTIONS (2)
  - WEIGHT DECREASED [None]
  - CROHN'S DISEASE [None]
